FAERS Safety Report 9508239 (Version 1)
Quarter: 2013Q3

REPORT INFORMATION
  Report Type: Spontaneous
  Country: US (occurrence: US)
  Receive Date: 20130909
  Receipt Date: 20130909
  Transmission Date: 20140515
  Serious: No
  Sender: FDA-Public Use
  Company Number: US-PFIZER INC-2013258539

PATIENT
  Age: 7 Year
  Sex: Male
  Weight: 23.58 kg

DRUGS (2)
  1. QUILLIVANT XR [Suspect]
     Indication: DISTURBANCE IN ATTENTION
     Dosage: UNKNOWN DOSE 4 ML, 1X/DAY
     Route: 048
     Dates: start: 2013
  2. LEVOCETIRIZINE [Concomitant]
     Indication: HYPERSENSITIVITY
     Dosage: UNK

REACTIONS (6)
  - Anger [Not Recovered/Not Resolved]
  - Aggression [Not Recovered/Not Resolved]
  - Abnormal behaviour [Not Recovered/Not Resolved]
  - Verbal abuse [Not Recovered/Not Resolved]
  - Drug hypersensitivity [Unknown]
  - Drug effect decreased [Unknown]
